FAERS Safety Report 5950605-1 (Version None)
Quarter: 2008Q4

REPORT INFORMATION
  Report Type: 
  Country: None (occurrence: None)
  Receive Date: 20081022
  Receipt Date: 20080613
  Transmission Date: 20090506
  Serious: No
  Sender: FDA-Public Use
  Company Number: ALL1-2008-01772

PATIENT
  Age: 12 Year
  Sex: Male

DRUGS (1)
  1. VYVANSE [Suspect]
     Indication: ATTENTION DEFICIT/HYPERACTIVITY DISORDER
     Dosage: MG,1X/DAY:QD,ORAL
     Route: 048
     Dates: start: 20080501, end: 20080101

REACTIONS (2)
  - MUSCULOSKELETAL STIFFNESS [None]
  - PARAESTHESIA [None]
